FAERS Safety Report 14880137 (Version 1)
Quarter: 2018Q2

REPORT INFORMATION
  Report Type: Spontaneous
  Country: FR (occurrence: FR)
  Receive Date: 20180511
  Receipt Date: 20180511
  Transmission Date: 20180711
  Serious: Yes (Other)
  Sender: FDA-Public Use
  Company Number: FR-MERCK KGAA-2047607

PATIENT
  Age: 38 Year
  Sex: Female

DRUGS (1)
  1. NOVOTHYROX [Suspect]
     Active Substance: LEVOTHYROXINE SODIUM
     Indication: PRODUCT USED FOR UNKNOWN INDICATION

REACTIONS (31)
  - Stress [Recovered/Resolved]
  - Irritability [Recovered/Resolved]
  - Weight increased [Recovered/Resolved]
  - Affect lability [Recovered/Resolved]
  - Pain [Recovered/Resolved]
  - Impaired driving ability [Recovered/Resolved]
  - Impaired work ability [Recovered/Resolved]
  - Social avoidant behaviour [Recovered/Resolved]
  - Fear [Recovered/Resolved]
  - Loss of personal independence in daily activities [Recovered/Resolved]
  - Job dissatisfaction [Recovered/Resolved]
  - Fatigue [Recovered/Resolved]
  - Nausea [Recovered/Resolved]
  - Asthenia [Recovered/Resolved]
  - Mental fatigue [Recovered/Resolved]
  - Depression [Recovered/Resolved]
  - Gastrointestinal disorder [Recovered/Resolved]
  - Diarrhoea [Recovered/Resolved]
  - Dizziness [Recovered/Resolved]
  - Muscle spasms [Recovered/Resolved]
  - Constipation [Recovered/Resolved]
  - Abdominal pain [Recovered/Resolved]
  - Pain in extremity [Recovered/Resolved]
  - Malaise [Recovered/Resolved]
  - Mental impairment [Recovered/Resolved]
  - Dry skin [Recovered/Resolved]
  - Muscle fatigue [Recovered/Resolved]
  - Anger [Recovered/Resolved]
  - Headache [Recovered/Resolved]
  - Alopecia [Recovered/Resolved]
  - Arthralgia [Recovered/Resolved]

NARRATIVE: CASE EVENT DATE: 2017
